FAERS Safety Report 5741044-7 (Version None)
Quarter: 2008Q2

REPORT INFORMATION
  Report Type: 
  Country: None (occurrence: None)
  Receive Date: 20080516
  Receipt Date: 20080506
  Transmission Date: 20081010
  Serious: Yes (Hospitalization)
  Sender: FDA-Public Use
  Company Number: FR-PFIZER INC-2008039415

PATIENT
  Age: 14 Year
  Sex: Male

DRUGS (3)
  1. ALDACTONE [Suspect]
     Indication: ENDOCARDITIS
     Route: 048
  2. TEGRETOL [Suspect]
     Indication: EPILEPSY
     Route: 048
     Dates: start: 20071101, end: 20071226
  3. PREVISCAN [Suspect]
     Route: 048

REACTIONS (3)
  - COUGH [None]
  - EOSINOPHILIA [None]
  - RASH [None]
